FAERS Safety Report 7462830-1 (Version None)
Quarter: 2011Q2

REPORT INFORMATION
  Report Type: 
  Country: None (occurrence: None)
  Receive Date: 20110506
  Receipt Date: 20110321
  Transmission Date: 20111010
  Serious: Yes (Hospitalization, Other)
  Sender: FDA-Public Use
  Company Number: US-BAYER-2010-002161

PATIENT
  Sex: Female
  Weight: 82.086 kg

DRUGS (4)
  1. CYCLOBENZAPRINE [Concomitant]
  2. YAZ [Suspect]
     Indication: MENOMETRORRHAGIA
     Dosage: UNK
     Dates: start: 20080601, end: 20090901
  3. IBUPROFEN [Concomitant]
  4. HYDROCODONE/APAA [Concomitant]

REACTIONS (2)
  - GALLBLADDER INJURY [None]
  - CHOLECYSTITIS CHRONIC [None]
